FAERS Safety Report 15961356 (Version 1)
Quarter: 2019Q1

REPORT INFORMATION
  Report Type: Spontaneous
  Country: US (occurrence: US)
  Receive Date: 20190123
  Receipt Date: 20190123
  Transmission Date: 20190417
  Serious: No
  Sender: FDA-Public Use
  Company Number: None

PATIENT
  Age: 54 Year
  Sex: Female

DRUGS (1)
  1. SIROLIMUS TAB [Suspect]
     Active Substance: SIROLIMUS

REACTIONS (2)
  - Product use issue [None]
  - Drug interaction [None]

NARRATIVE: CASE EVENT DATE: 20190122
